FAERS Safety Report 7715103-3 (Version None)
Quarter: 2011Q3

REPORT INFORMATION
  Report Type: 
  Country: None (occurrence: None)
  Receive Date: 20110822
  Receipt Date: 20110812
  Transmission Date: 20111222
  Serious: Yes (Other)
  Sender: FDA-Public Use
  Company Number: CL-334-2011

PATIENT
  Age: 52 Year
  Sex: Male
  Weight: 80 kg

DRUGS (1)
  1. FLUCONAZOLE [Suspect]
     Indication: TINEA INFECTION
     Dosage: 200MG PO

REACTIONS (3)
  - PHOTOSENSITIVITY REACTION [None]
  - SKIN IRRITATION [None]
  - ECZEMA [None]
